FAERS Safety Report 6330997-4 (Version None)
Quarter: 2009Q3

REPORT INFORMATION
  Report Type: 
  Country: None (occurrence: None)
  Receive Date: 20090827
  Receipt Date: 20090818
  Transmission Date: 20100115
  Serious: Yes (Hospitalization)
  Sender: FDA-Public Use
  Company Number: A0731298A

PATIENT
  Age: 53 Year
  Sex: Male
  Weight: 95.5 kg

DRUGS (8)
  1. AVANDIA [Suspect]
     Dosage: 8MG PER DAY
     Route: 048
     Dates: start: 20070201, end: 20070901
  2. AVANDAMET [Suspect]
     Indication: DRUG USE FOR UNKNOWN INDICATION
     Route: 065
     Dates: start: 20021114, end: 20021215
  3. METFORMIN HCL [Concomitant]
     Dates: start: 20010101
  4. ACTOS [Concomitant]
     Dates: start: 20070609, end: 20070705
  5. GLUCOTROL [Concomitant]
     Dates: start: 19970101
  6. NORTRIPTYLINE HCL [Concomitant]
     Dates: start: 19940101, end: 20080201
  7. DARVOCET [Concomitant]
  8. ALBUTEROL [Concomitant]

REACTIONS (3)
  - CEREBROVASCULAR ACCIDENT [None]
  - INJURY [None]
  - SPEECH DISORDER [None]
